FAERS Safety Report 22043238 (Version 2)
Quarter: 2023Q4

REPORT INFORMATION
  Report Type: Spontaneous
  Country: US (occurrence: US)
  Receive Date: 20230228
  Receipt Date: 20231218
  Transmission Date: 20240110
  Serious: Yes (Hospitalization, Other)
  Sender: FDA-Public Use
  Company Number: US-CIPLA LTD.-2023US01096

PATIENT

DRUGS (4)
  1. PREGABALIN [Suspect]
     Active Substance: PREGABALIN
     Indication: Neuralgia
     Dosage: UNK
     Route: 065
  2. GABAPENTIN [Suspect]
     Active Substance: GABAPENTIN
     Indication: Neuralgia
     Dosage: UNK
     Route: 065
  3. 4-AMINO-3-PHENYLBUTYRIC ACID [Suspect]
     Active Substance: 4-AMINO-3-PHENYLBUTYRIC ACID
     Indication: Neuralgia
     Dosage: {2G, DAILY
     Route: 065
  4. 4-AMINO-3-PHENYLBUTYRIC ACID [Suspect]
     Active Substance: 4-AMINO-3-PHENYLBUTYRIC ACID
     Dosage: }4 G DAILY
     Route: 065

REACTIONS (16)
  - Emotional distress [Unknown]
  - Irritability [Unknown]
  - Loss of consciousness [Unknown]
  - Hot flush [Unknown]
  - Restlessness [Unknown]
  - Tachycardia [Unknown]
  - Insomnia [Unknown]
  - Hypertension [Unknown]
  - Hyperhidrosis [Unknown]
  - Hallucination, visual [Unknown]
  - Delusion [Unknown]
  - Drug tolerance [Unknown]
  - Toxicity to various agents [Unknown]
  - Intentional product misuse [Unknown]
  - Drug dependence [Unknown]
  - Nausea [Unknown]
